FAERS Safety Report 23670701 (Version 1)
Quarter: 2024Q1

REPORT INFORMATION
  Report Type: Spontaneous
  Country: US (occurrence: US)
  Receive Date: 20240326
  Receipt Date: 20240326
  Transmission Date: 20240409
  Serious: No
  Sender: FDA-Public Use
  Company Number: US-BoehringerIngelheim-2024-BI-016292

PATIENT
  Sex: Female

DRUGS (12)
  1. COMBIVENT RESPIMAT [Suspect]
     Active Substance: ALBUTEROL SULFATE\IPRATROPIUM BROMIDE
     Indication: Asthma
     Dosage: 3-4 SPRAYS DAILY AS NEEDED
     Route: 055
  2. ENALAPRIL [Concomitant]
     Active Substance: ENALAPRIL
     Indication: Product used for unknown indication
  3. AMLODIPINE [Concomitant]
     Active Substance: AMLODIPINE BESYLATE
     Indication: Product used for unknown indication
  4. CARVEDILOL [Concomitant]
     Active Substance: CARVEDILOL
     Indication: Product used for unknown indication
  5. HYDRALAZINE [Concomitant]
     Active Substance: HYDRALAZINE HYDROCHLORIDE
     Indication: Product used for unknown indication
  6. METFORMIN [Concomitant]
     Active Substance: METFORMIN HYDROCHLORIDE
     Indication: Glucose tolerance impaired
  7. torsamide [Concomitant]
     Indication: Peripheral swelling
     Dosage: AS NEEDED
  8. MUCINEX [Concomitant]
     Active Substance: GUAIFENESIN
     Indication: Nasal congestion
  9. TUSSIN [Concomitant]
     Active Substance: GUAIFENESIN
     Indication: Nasal congestion
  10. generic for Symbicort [Concomitant]
     Indication: Product used for unknown indication
     Dosage: DAILY
  11. ipratroprium/albuterol inhalation nebulizing solution [Concomitant]
     Indication: Product used for unknown indication
     Dosage: 0.5 MG/3 MG AS NEEDED
     Route: 055
  12. SYMBICORT [Concomitant]
     Active Substance: BUDESONIDE\FORMOTEROL FUMARATE DIHYDRATE
     Indication: Product used for unknown indication
     Route: 055

REACTIONS (3)
  - Choking [Unknown]
  - Lung disorder [Unknown]
  - Dyspnoea [Unknown]
